FAERS Safety Report 4574773-1 (Version None)
Quarter: 2005Q1

REPORT INFORMATION
  Report Type: 
  Country: None (occurrence: None)
  Receive Date: 20050208
  Receipt Date: 20040618
  Transmission Date: 20050727
  Serious: No
  Sender: FDA-Public Use
  Company Number: US-GLAXOSMITHKLINE-A0515312A

PATIENT
  Age: 32 Year
  Sex: Female
  Weight: 59.1 kg

DRUGS (1)
  1. PAXIL CR [Suspect]
     Indication: DRUG USE FOR UNKNOWN INDICATION
     Dosage: 37.5MG PER DAY
     Route: 048

REACTIONS (4)
  - DIZZINESS [None]
  - PARAESTHESIA [None]
  - SENSORY DISTURBANCE [None]
  - VISUAL DISTURBANCE [None]
